FAERS Safety Report 10452264 (Version 1)
Quarter: 2014Q3

REPORT INFORMATION
  Report Type: Spontaneous
  Country: ES (occurrence: None)
  Receive Date: 20140911
  Receipt Date: 20140911
  Transmission Date: 20150326
  Serious: Yes (Other)
  Sender: FDA-Public Use
  Company Number: INT_00408_2014

PATIENT
  Age: 50 Year
  Sex: Female

DRUGS (2)
  1. BIBF 1120 [Suspect]
     Active Substance: NINTEDANIB
     Indication: BREAST CANCER
     Dosage: 12 CYCLES, DOSE UNKNOWN ADMINISTERED WEEKLY
  2. PACLITAXEL. [Suspect]
     Active Substance: PACLITAXEL
     Indication: BREAST CANCER
     Dosage: 12 CYCLES, DOSE UNKNOWN ADMINISTERED WEEKLY

REACTIONS (4)
  - Paronychia [None]
  - Onycholysis [None]
  - Pain [None]
  - Staphylococcal infection [None]
